FAERS Safety Report 4299242-8 (Version None)
Quarter: 2004Q1

REPORT INFORMATION
  Report Type: 
  Country: None (occurrence: None)
  Receive Date: 20040217
  Receipt Date: 20040129
  Transmission Date: 20041129
  Serious: Yes (Disabling)
  Sender: FDA-Public Use
  Company Number: 2004S1000003

PATIENT
  Age: 42 Year
  Sex: Male
  Weight: 88.4514 kg

DRUGS (3)
  1. DELATESTRYL [Suspect]
     Indication: BLOOD TESTOSTERONE DECREASED
     Dosage: 1 ML TWICE A MONTH IM
     Route: 030
  2. DELATESTRYL [Suspect]
     Indication: BLOOD CALCIUM DECREASED
     Dosage: 1.5 ML TWICE A MONTH IM
     Route: 030
     Dates: end: 20031201
  3. ANTIVIRAL DRUGS [Concomitant]

REACTIONS (8)
  - BACK PAIN [None]
  - DIFFICULTY IN WALKING [None]
  - ERECTILE DYSFUNCTION [None]
  - HAEMANGIOMA [None]
  - HERPES ZOSTER [None]
  - INJECTION SITE PAIN [None]
  - MOBILITY DECREASED [None]
  - PAIN [None]
